APPROVED DRUG PRODUCT: AMOXICILLIN
Active Ingredient: AMOXICILLIN
Strength: 875MG
Dosage Form/Route: TABLET;ORAL
Application: A065255 | Product #001 | TE Code: AB
Applicant: HIKMA PHARMACEUTICALS
Approved: Mar 29, 2006 | RLD: No | RS: No | Type: RX